FAERS Safety Report 7130805-8 (Version None)
Quarter: 2010Q4

REPORT INFORMATION
  Report Type: 
  Country: None (occurrence: None)
  Receive Date: 20101201
  Receipt Date: 20101124
  Transmission Date: 20110411
  Serious: Yes (Death, Hospitalization)
  Sender: FDA-Public Use
  Company Number: PHHO2010DE16909

PATIENT
  Sex: Male
  Weight: 65 kg

DRUGS (1)
  1. AFINITOR [Suspect]
     Indication: METASTATIC RENAL CELL CARCINOMA
     Dosage: 10 MG / DAY
     Route: 048
     Dates: start: 20101015, end: 20101107

REACTIONS (5)
  - C-REACTIVE PROTEIN INCREASED [None]
  - DEATH [None]
  - DIARRHOEA [None]
  - FATIGUE [None]
  - FLANK PAIN [None]
